FAERS Safety Report 5423145-6 (Version None)
Quarter: 2007Q3

REPORT INFORMATION
  Report Type: 
  Country: None (occurrence: None)
  Receive Date: 20070821
  Receipt Date: 20070724
  Transmission Date: 20080115
  Serious: Yes (Other)
  Sender: FDA-Public Use
  Company Number: CHNY2007DE02725

PATIENT
  Age: 36 Year
  Sex: Female
  Weight: 64 kg

DRUGS (1)
  1. PENCICLOVIR [Suspect]
     Indication: ORAL HERPES
     Dosage: TOPICAL
     Route: 061

REACTIONS (5)
  - CONDITION AGGRAVATED [None]
  - DRUG INEFFECTIVE [None]
  - INCORRECT DRUG ADMINISTRATION DURATION [None]
  - ORAL HERPES [None]
  - SCAR [None]
